FAERS Safety Report 5859140-2 (Version None)
Quarter: 2008Q3

REPORT INFORMATION
  Report Type: 
  Country: None (occurrence: None)
  Receive Date: 20080825
  Receipt Date: 20080814
  Transmission Date: 20090109
  Serious: Yes (Other)
  Sender: FDA-Public Use
  Company Number: GB-DEXPHARM-20080928

PATIENT
  Age: 40 Year
  Sex: Male

DRUGS (3)
  1. OMEPRAZOLE [Suspect]
     Dosage: 20 MG MILLIGRAM(S) ORAL
     Route: 048
     Dates: start: 20080725, end: 20080730
  2. LANTUS [Concomitant]
  3. NOVORAPID (INSULIN ASPART) [Concomitant]

REACTIONS (1)
  - HYPOGLYCAEMIA UNAWARENESS [None]
